FAERS Safety Report 5842500-3 (Version None)
Quarter: 2008Q3

REPORT INFORMATION
  Report Type: 
  Country: None (occurrence: None)
  Receive Date: 20080812
  Receipt Date: 20080731
  Transmission Date: 20090109
  Serious: Yes (Death, Other)
  Sender: FDA-Public Use
  Company Number: JP-PFIZER INC-2008061220

PATIENT
  Sex: Male

DRUGS (7)
  1. CHANTIX [Suspect]
     Indication: EX-TOBACCO USER
     Route: 048
     Dates: start: 20080601, end: 20080629
  2. TULOBUTEROL [Concomitant]
     Indication: BRONCHITIS CHRONIC
     Route: 062
  3. CLARITHROMYCIN [Concomitant]
     Indication: BRONCHITIS CHRONIC
     Route: 048
  4. MUCOSOLVAN [Concomitant]
     Indication: BRONCHITIS CHRONIC
     Route: 048
  5. MEDICON [Concomitant]
     Indication: BRONCHITIS CHRONIC
     Route: 048
  6. MUCODYNE [Concomitant]
     Indication: BRONCHITIS CHRONIC
     Route: 048
  7. NORVASC [Concomitant]
     Indication: HYPERTENSION
     Route: 048
     Dates: start: 20080425

REACTIONS (4)
  - ACUTE RESPIRATORY FAILURE [None]
  - CARDIAC ARREST [None]
  - DEPRESSED LEVEL OF CONSCIOUSNESS [None]
  - PHARYNGEAL OEDEMA [None]
